FAERS Safety Report 18660411 (Version 1)
Quarter: 2020Q4

REPORT INFORMATION
  Report Type: Spontaneous
  Country: FR (occurrence: FR)
  Receive Date: 20201224
  Receipt Date: 20201224
  Transmission Date: 20210114
  Serious: Yes (Hospitalization)
  Sender: FDA-Public Use
  Company Number: FR-TEVA-2020-FR-1860126

PATIENT
  Age: 75 Year
  Sex: Female
  Weight: 92 kg

DRUGS (17)
  1. GALVUS 50 MG, COMPRIME [Suspect]
     Active Substance: VILDAGLIPTIN
     Indication: TYPE 2 DIABETES MELLITUS
     Route: 048
  2. PREVISCAN [Concomitant]
  3. AMLOR [Concomitant]
     Active Substance: AMLODIPINE BESYLATE
  4. BISOPROLOL (HEMIFUMARATE DE) [Suspect]
     Active Substance: BISOPROLOL FUMARATE
     Indication: PRODUCT USED FOR UNKNOWN INDICATION
     Route: 048
     Dates: end: 20180519
  5. LANTUS [Suspect]
     Active Substance: INSULIN GLARGINE
     Indication: TYPE 2 DIABETES MELLITUS
     Route: 058
  6. CALTRATE [Concomitant]
     Active Substance: CALCIUM CARBONATE
  7. PAROXETINE. [Concomitant]
     Active Substance: PAROXETINE
  8. ADENURIC [Concomitant]
     Active Substance: FEBUXOSTAT
  9. INEXIUM [Concomitant]
     Active Substance: ESOMEPRAZOLE
  10. IXPRIM [Concomitant]
     Active Substance: ACETAMINOPHEN\TRAMADOL HYDROCHLORIDE
  11. ALLOPURINOL. [Concomitant]
     Active Substance: ALLOPURINOL
  12. DIFFU K [Concomitant]
     Active Substance: POTASSIUM CHLORIDE
  13. COLCHICINE. [Concomitant]
     Active Substance: COLCHICINE
  14. LEVOTHYROX [Concomitant]
     Active Substance: LEVOTHYROXINE
  15. LEXOMIL [Suspect]
     Active Substance: BROMAZEPAM
     Indication: PRODUCT USED FOR UNKNOWN INDICATION
     Route: 048
     Dates: end: 20180518
  16. ROPINIROLE (CHLORHYDRATE DE) [Concomitant]
     Active Substance: ROPINIROLE HYDROCHLORIDE
  17. FUROSEMIDE. [Suspect]
     Active Substance: FUROSEMIDE
     Indication: PRODUCT USED FOR UNKNOWN INDICATION
     Route: 048

REACTIONS (1)
  - Fall [Recovered/Resolved]

NARRATIVE: CASE EVENT DATE: 201802
